FAERS Safety Report 5729771-9 (Version None)
Quarter: 2008Q2

REPORT INFORMATION
  Report Type: 
  Country: None (occurrence: None)
  Receive Date: 20080501
  Receipt Date: 20080417
  Transmission Date: 20081010
  Serious: Yes (Other)
  Sender: FDA-Public Use
  Company Number: 2007S1008840

PATIENT
  Sex: Female

DRUGS (4)
  1. MERCAPTAMINE BITARTRATE (MERCAPTAMINE BITARTRATE) [Suspect]
     Indication: CYSTINOSIS
     Dosage: 350 MG; TWICE A DAY; ORAL
     Route: 048
  2. TACROLIMUS [Concomitant]
  3. PREDNISOLONE /00016202/ [Concomitant]
  4. LEVOTHYROXINE SODIUM [Concomitant]

REACTIONS (1)
  - BACK PAIN [None]
